FAERS Safety Report 10329655 (Version 2)
Quarter: 2014Q3

REPORT INFORMATION
  Report Type: Spontaneous
  Country: US (occurrence: US)
  Receive Date: 20140721
  Receipt Date: 20140721
  Transmission Date: 20150326
  Serious: No
  Sender: FDA-Public Use
  Company Number: US-ASTRAZENECA-2013SE48705

PATIENT
  Age: 76 Year
  Sex: Female
  Weight: 83 kg

DRUGS (7)
  1. VITAMIN D [Concomitant]
     Active Substance: CHOLECALCIFEROL
  2. CALCIUM [Concomitant]
     Active Substance: CALCIUM
  3. ANASTRAZOLE [Suspect]
     Active Substance: ANASTROZOLE
     Indication: BREAST CANCER FEMALE
     Route: 048
     Dates: start: 201009, end: 20140602
  4. ANASTRAZOLE [Suspect]
     Active Substance: ANASTROZOLE
     Indication: BREAST CANCER FEMALE
     Dosage: GENERIC
     Route: 048
  5. ANASTRAZOLE [Suspect]
     Active Substance: ANASTROZOLE
     Indication: BREAST CANCER FEMALE
     Route: 048
     Dates: start: 2011, end: 20140602
  6. FLUCTINASE PROPINATE [Concomitant]
     Indication: ASTHMA
  7. FLOVENT DISCUS [Concomitant]
     Indication: ASTHMA
     Dosage: 250MCG BID

REACTIONS (11)
  - Trigger finger [Recovered/Resolved]
  - Hot flush [Recovering/Resolving]
  - Myalgia [Unknown]
  - Arthralgia [Unknown]
  - Flushing [Unknown]
  - Rash [Recovered/Resolved with Sequelae]
  - Lichen planus [Not Recovered/Not Resolved]
  - Back pain [Unknown]
  - Hyperhidrosis [Recovering/Resolving]
  - Dermatitis contact [Unknown]
  - Alopecia [Not Recovered/Not Resolved]

NARRATIVE: CASE EVENT DATE: 2013
